FAERS Safety Report 14085179 (Version 2)
Quarter: 2018Q1

REPORT INFORMATION
  Report Type: Spontaneous
  Country: IT (occurrence: IT)
  Receive Date: 20171013
  Receipt Date: 20180319
  Transmission Date: 20180508
  Serious: Yes (Other)
  Sender: FDA-Public Use
  Company Number: IT-ACCORD-059845

PATIENT
  Age: 68 Year
  Sex: Male

DRUGS (2)
  1. GEMCITABINE ACCORD [Suspect]
     Active Substance: GEMCITABINE HYDROCHLORIDE
     Indication: PANCREATIC CARCINOMA
     Dosage: STRENGTH: 100 MG/ML
     Route: 042
     Dates: start: 20170908
  2. ABRAXANE [Suspect]
     Active Substance: PACLITAXEL
     Indication: PANCREATIC CARCINOMA
     Dosage: STRENGTH: 5 MG/ML
     Route: 042
     Dates: start: 20170908

REACTIONS (3)
  - Neutropenia [Unknown]
  - Anaemia [Unknown]
  - Leukopenia [Unknown]

NARRATIVE: CASE EVENT DATE: 20170921
